FAERS Safety Report 8270325-0 (Version None)
Quarter: 2012Q2

REPORT INFORMATION
  Report Type: 
  Country: None (occurrence: None)
  Receive Date: 20120410
  Receipt Date: 20120405
  Transmission Date: 20120825
  Serious: Yes (Death)
  Sender: FDA-Public Use
  Company Number: US-JNJFOC-20120203770

PATIENT
  Sex: Male
  Weight: 121.11 kg

DRUGS (23)
  1. FINASTERIDE [Concomitant]
     Indication: PROSTATIC DISORDER
     Route: 048
     Dates: start: 20110401
  2. VITAMIN B-12 [Concomitant]
     Route: 048
  3. FUROSEMIDE [Concomitant]
     Indication: FLUID RETENTION
     Route: 048
     Dates: start: 20120101
  4. METOPROLOL TARTRATE [Concomitant]
     Indication: BLOOD PRESSURE
     Route: 048
  5. LORAZEPAM [Concomitant]
     Indication: TREMOR
     Route: 048
     Dates: start: 20120101
  6. COLACE [Concomitant]
     Indication: ABNORMAL FAECES
     Route: 048
  7. OXYCODONE HCL [Concomitant]
     Indication: PAIN
     Route: 048
     Dates: end: 20120206
  8. SIMVASTATIN [Concomitant]
     Indication: BLOOD CHOLESTEROL ABNORMAL
     Route: 048
  9. ASPIRIN [Concomitant]
     Indication: CARDIAC DISORDER
     Route: 048
     Dates: start: 20091101
  10. NUCYNTA [Suspect]
     Indication: MUSCULOSKELETAL PAIN
     Route: 048
     Dates: start: 20120201, end: 20120205
  11. FLOMAX [Concomitant]
     Indication: PROSTATIC DISORDER
     Route: 048
  12. DILANTIN [Concomitant]
     Indication: CONVULSION
     Route: 048
  13. LISINOPRIL [Concomitant]
     Indication: CARDIAC DISORDER
     Route: 048
     Dates: start: 20120101
  14. VITAMIN D [Concomitant]
     Indication: BONE DISORDER
     Route: 048
     Dates: start: 20120101
  15. PLAVIX [Concomitant]
     Indication: STENT PLACEMENT
     Route: 048
     Dates: start: 20091101
  16. POTASSIUM [Concomitant]
     Indication: BLOOD POTASSIUM
     Route: 048
  17. ALBUTEROL [Concomitant]
     Indication: RESPIRATORY DISORDER
     Route: 065
  18. LORAZEPAM [Concomitant]
     Route: 048
     Dates: start: 20120101
  19. NOVOLIN N [Concomitant]
     Indication: DIABETES MELLITUS
     Dosage: 65 UNITS
     Route: 058
  20. OXYCODONE HCL [Concomitant]
     Route: 048
  21. GABAPENTIN [Concomitant]
     Indication: NEURALGIA
     Route: 048
  22. METFORMIN HCL [Concomitant]
     Indication: DIABETES MELLITUS
     Dosage: 500 MG WITH BREAK LUNCH AND 2 SUPPER
     Route: 058
  23. TRAVATAN [Concomitant]
     Indication: EYE DISORDER
     Route: 047

REACTIONS (2)
  - MUSCULOSKELETAL PAIN [None]
  - DEATH [None]
